FAERS Safety Report 24662850 (Version 1)
Quarter: 2024Q4

REPORT INFORMATION
  Report Type: Spontaneous
  Country: US (occurrence: US)
  Receive Date: 20241126
  Receipt Date: 20241126
  Transmission Date: 20250114
  Serious: No
  Sender: ELI LILLY AND COMPANY
  Company Number: US-ELI_LILLY_AND_COMPANY-US202411015775

PATIENT
  Age: 40 Year
  Sex: Female

DRUGS (1)
  1. ZEPBOUND [Suspect]
     Active Substance: TIRZEPATIDE
     Indication: Weight control
     Dosage: 2.5 MG, UNKNOWN
     Route: 058

REACTIONS (7)
  - Influenza like illness [Recovered/Resolved]
  - Back pain [Recovered/Resolved]
  - Arthralgia [Recovered/Resolved]
  - Musculoskeletal stiffness [Recovered/Resolved]
  - Diarrhoea [Recovering/Resolving]
  - Lethargy [Recovering/Resolving]
  - Constipation [Recovered/Resolved]
